FAERS Safety Report 18176367 (Version 2)
Quarter: 2020Q3

REPORT INFORMATION
  Report Type: Spontaneous
  Country: US (occurrence: US)
  Receive Date: 20200820
  Receipt Date: 20200828
  Transmission Date: 20201103
  Serious: No
  Sender: FDA-Public Use
  Company Number: US-ASTRAZENECA-2020SF03232

PATIENT
  Sex: Female
  Weight: 68 kg

DRUGS (7)
  1. LANTUS [Concomitant]
     Active Substance: INSULIN GLARGINE
     Dosage: 25USP UNITS AT NIGHT
     Dates: start: 2017
  2. ATORVASTATIN [Concomitant]
     Active Substance: ATORVASTATIN
  3. BYDUREON [Suspect]
     Active Substance: EXENATIDE
     Indication: TYPE 2 DIABETES MELLITUS
     Route: 058
     Dates: start: 20191221
  4. DICLOFANAC [Concomitant]
     Indication: OSTEOARTHRITIS
     Dates: start: 201911
  5. FARXIGA [Concomitant]
     Active Substance: DAPAGLIFLOZIN PROPANEDIOL
     Indication: TYPE 2 DIABETES MELLITUS
     Route: 048
     Dates: start: 2017
  6. LISINOPRIL. [Concomitant]
     Active Substance: LISINOPRIL
     Indication: HYPERTENSION
     Dates: start: 2014
  7. VITAMIN D [Concomitant]
     Active Substance: VITAMIN D NOS
     Indication: CALCIUM DEFICIENCY

REACTIONS (4)
  - Injection site pain [Unknown]
  - Intentional device misuse [Unknown]
  - Wrong technique in device usage process [Unknown]
  - Device issue [Unknown]
